FAERS Safety Report 7599630-8 (Version None)
Quarter: 2011Q2

REPORT INFORMATION
  Report Type: 
  Country: None (occurrence: None)
  Receive Date: 20110623
  Receipt Date: 20110616
  Transmission Date: 20111010
  Serious: Yes (Hospitalization)
  Sender: FDA-Public Use
  Company Number: AEUSA201100156

PATIENT
  Age: 10 Month
  Sex: Female

DRUGS (1)
  1. GAMASTAN [Suspect]
     Indication: PROPHYLAXIS
     Dosage: 2.3 ML;1X/IM
     Route: 030
     Dates: start: 20110602, end: 20110602

REACTIONS (2)
  - PRODUCT MEASURED POTENCY ISSUE [None]
  - PNEUMONIA [None]
